FAERS Safety Report 4570708-6 (Version None)
Quarter: 2005Q1

REPORT INFORMATION
  Report Type: 
  Country: None (occurrence: None)
  Receive Date: 20050202
  Receipt Date: 20050113
  Transmission Date: 20050727
  Serious: Yes (Other)
  Sender: FDA-Public Use
  Company Number: EWC050142237

PATIENT
  Age: 62 Year
  Sex: Male

DRUGS (7)
  1. OLANZAPINE [Suspect]
     Indication: AFFECTIVE DISORDER
     Dosage: 20 MG DAY
     Dates: start: 20041004, end: 20041009
  2. OLANZAPINE [Suspect]
     Indication: BIPOLAR DISORDER
     Dosage: 20 MG DAY
     Dates: start: 20041004, end: 20041009
  3. LAMICTAL [Concomitant]
  4. SEROQUEL [Concomitant]
  5. MODURETIC 5-50 [Concomitant]
  6. PANTOPRAZOLE SODIUM [Concomitant]
  7. VALIUM [Concomitant]

REACTIONS (6)
  - ERYTHEMA [None]
  - HAEMATOCRIT DECREASED [None]
  - HAEMOGLOBIN DECREASED [None]
  - OEDEMA PERIPHERAL [None]
  - RASH MACULO-PAPULAR [None]
  - RED BLOOD CELL COUNT DECREASED [None]
